FAERS Safety Report 15793693 (Version 1)
Quarter: 2019Q1

REPORT INFORMATION
  Report Type: Spontaneous
  Country: CN (occurrence: CN)
  Receive Date: 20190107
  Receipt Date: 20190107
  Transmission Date: 20190417
  Serious: Yes (Other)
  Sender: FDA-Public Use
  Company Number: CN-PFIZER INC-2019001091

PATIENT
  Age: 58 Year
  Sex: Male

DRUGS (3)
  1. SOLU-MEDROL [Suspect]
     Active Substance: METHYLPREDNISOLONE SODIUM SUCCINATE
     Dosage: 80 MG, 1X/DAY
     Route: 041
     Dates: start: 20181009, end: 20181009
  2. SOLU-MEDROL [Suspect]
     Active Substance: METHYLPREDNISOLONE SODIUM SUCCINATE
     Indication: SPINAL CORD INJURY CERVICAL
     Dosage: 1.5 G, 1X/DAY
     Route: 041
     Dates: start: 20181004, end: 20181004
  3. SOLU-MEDROL [Suspect]
     Active Substance: METHYLPREDNISOLONE SODIUM SUCCINATE
     Dosage: 6 G, 1X/DAY
     Route: 041
     Dates: start: 20181004, end: 20181004

REACTIONS (2)
  - White blood cell count increased [Recovering/Resolving]
  - Pharyngotonsillitis [Recovering/Resolving]

NARRATIVE: CASE EVENT DATE: 20181007
